FAERS Safety Report 8309151-2 (Version None)
Quarter: 2012Q2

REPORT INFORMATION
  Report Type: 
  Country: None (occurrence: None)
  Receive Date: 20120424
  Receipt Date: 20120419
  Transmission Date: 20120825
  Serious: Yes (Other)
  Sender: FDA-Public Use
  Company Number: CA-AMGEN-CANSP2012009071

PATIENT
  Age: 23 Year
  Sex: Female

DRUGS (1)
  1. ENBREL [Suspect]
     Indication: PSORIATIC ARTHROPATHY
     Dosage: 50 MG, UNK
     Dates: start: 20120123, end: 20120131

REACTIONS (10)
  - DEPRESSION [None]
  - MOOD ALTERED [None]
  - HYPERSENSITIVITY [None]
  - RASH [None]
  - PSORIASIS [None]
  - PRURITUS [None]
  - PANIC ATTACK [None]
  - DRY SKIN [None]
  - URTICARIA [None]
  - DYSPHONIA [None]
